FAERS Safety Report 11149897 (Version 6)
Quarter: 2015Q3

REPORT INFORMATION
  Report Type: Report from Study
  Country: IE (occurrence: IE)
  Receive Date: 20150529
  Receipt Date: 20150924
  Transmission Date: 20151125
  Serious: Yes (Death, Life-Threatening, Hospitalization, Other)
  Sender: FDA-Public Use
  Company Number: IE-009507513-1505IRL009517

PATIENT
  Age: 42 Year
  Sex: Male
  Weight: 74 kg

DRUGS (13)
  1. DASABUVIR [Suspect]
     Active Substance: DASABUVIR
     Indication: HEPATITIS C
     Dosage: 1 DF, BID
     Route: 048
     Dates: start: 20150401, end: 20150409
  2. LANSOPRAZOLE. [Concomitant]
     Active Substance: LANSOPRAZOLE
     Dosage: UNK
  3. BUSCOPAN [Concomitant]
     Active Substance: BUTYLSCOPOLAMINE BROMIDE
  4. PROPRANOLOL [Concomitant]
     Active Substance: PROPRANOLOL\PROPRANOLOL HYDROCHLORIDE
     Route: 048
  5. ARCOXIA [Suspect]
     Active Substance: ETORICOXIB
     Dosage: 90 MG, QD
     Route: 048
     Dates: start: 20150311
  6. VENTOLIN [Concomitant]
     Active Substance: ALBUTEROL SULFATE
     Dosage: UNK
  7. ACETAMINOPHEN. [Concomitant]
     Active Substance: ACETAMINOPHEN
     Dosage: UNK, PRN
  8. VIEKIRAX [Suspect]
     Active Substance: OMBITASVIR\PARITAPREVIR\RITONAVIR
     Indication: HEPATITIS C
     Dosage: 12.5/75/50 MG TWO DAILY
     Route: 048
     Dates: start: 20150401, end: 20150409
  9. METHADONE HYDROCHLORIDE. [Concomitant]
     Active Substance: METHADONE HYDROCHLORIDE
     Dosage: UNK
  10. ARCOXIA [Suspect]
     Active Substance: ETORICOXIB
     Dosage: 90 MG, QD
     Route: 048
     Dates: start: 20150327
  11. ALPRAZOLAM. [Concomitant]
     Active Substance: ALPRAZOLAM
     Dosage: UNK
  12. RIBAVIRIN. [Suspect]
     Active Substance: RIBAVIRIN
     Dosage: 600/400MG, PER DAY
     Route: 048
     Dates: start: 20150401, end: 20150409
  13. BECLAZONE EASI BREATHE [Concomitant]
     Dosage: UNK

REACTIONS (15)
  - Pancreatitis [Fatal]
  - Malaise [Not Recovered/Not Resolved]
  - Encephalopathy [Fatal]
  - Blood bilirubin increased [Not Recovered/Not Resolved]
  - Acute kidney injury [Fatal]
  - Ascites [Fatal]
  - Oedema [Not Recovered/Not Resolved]
  - Diarrhoea [Unknown]
  - Hepatic failure [Fatal]
  - Asthma [Not Recovered/Not Resolved]
  - Pruritus [Not Recovered/Not Resolved]
  - Pyrexia [Not Recovered/Not Resolved]
  - Jaundice [Fatal]
  - Abdominal pain [Not Recovered/Not Resolved]
  - Hepatic cirrhosis [Fatal]

NARRATIVE: CASE EVENT DATE: 2015
